FAERS Safety Report 7077380-4 (Version None)
Quarter: 2010Q4

REPORT INFORMATION
  Report Type: 
  Country: None (occurrence: None)
  Receive Date: 20101021
  Receipt Date: 20101007
  Transmission Date: 20110411
  Serious: Yes (Hospitalization)
  Sender: FDA-Public Use
  Company Number: 1000015721

PATIENT
  Age: 84 Year
  Sex: Male

DRUGS (12)
  1. MEMANTINE HCL [Suspect]
     Indication: DEMENTIA ALZHEIMER'S TYPE
     Dosage: 10 MG (10 MG, 1 IN 1 D), ORAL
     Route: 048
     Dates: start: 20100616
  2. MEMANTINE HCL [Suspect]
     Indication: DEMENTIA ALZHEIMER'S TYPE
     Dosage: 20 MG ( 20 MG, 1 IN 1 D), ORAL
     Route: 048
     Dates: end: 20100730
  3. PRAVASTATIN [Concomitant]
  4. METOPROLOL SUCCINATE [Concomitant]
  5. THROMBYL (ACETYLSALICYLIC ACID) (ACETYLSALICYLIC ACID) [Concomitant]
  6. ARICEPT [Concomitant]
  7. ZOLPIDEM (ZOLPIDEM) (ZOLPIDEM) [Concomitant]
  8. LASIX RETARD (FUROSEMIDE) (FUROSEMIDE) [Concomitant]
  9. OMEPRAZOL (OMEPRAZOLE) (OMEPRAZOLE) [Concomitant]
  10. LAMOTRIGIN (LAMOTRIGINE) (LAMOTRIGINE) [Concomitant]
  11. ETALPHA (COLECALCIFEROL) (COLECALCIFEROL) [Concomitant]
  12. DIAZEPAM [Concomitant]

REACTIONS (6)
  - BLOOD CREATININE INCREASED [None]
  - C-REACTIVE PROTEIN INCREASED [None]
  - CONFUSIONAL STATE [None]
  - LOGORRHOEA [None]
  - PROTEUS INFECTION [None]
  - SLEEP DISORDER [None]
